FAERS Safety Report 7070540-8 (Version None)
Quarter: 2010Q4

REPORT INFORMATION
  Report Type: 
  Country: None (occurrence: None)
  Receive Date: 20101027
  Receipt Date: 20101027
  Transmission Date: 20110411
  Serious: Yes (Other)
  Sender: FDA-Public Use
  Company Number: None

PATIENT
  Age: 73 Year
  Sex: Male
  Weight: 72.5755 kg

DRUGS (1)
  1. AMOXICILLIN [Suspect]
     Indication: ORAL INFECTION
     Dosage: 500 MG 4X/DAY PO
     Route: 048
     Dates: start: 20100927, end: 20101004

REACTIONS (2)
  - DRUG INEFFECTIVE [None]
  - PRODUCT ODOUR ABNORMAL [None]
